FAERS Safety Report 5796619-6 (Version None)
Quarter: 2008Q3

REPORT INFORMATION
  Report Type: 
  Country: None (occurrence: None)
  Receive Date: 20080701
  Receipt Date: 20080626
  Transmission Date: 20090109
  Serious: Yes (Hospitalization)
  Sender: FDA-Public Use
  Company Number: DK-ABBOTT-08P-044-0459069-00

PATIENT
  Sex: Male
  Weight: 75 kg

DRUGS (3)
  1. HUMIRA [Suspect]
     Indication: ARTHRITIS
     Route: 058
     Dates: start: 20040101, end: 20051101
  2. UNSPECIFIED MEDICATION FOR ARTHRITIS [Concomitant]
     Indication: ARTHRITIS
  3. RABEPRAZOLE SODIUM [Concomitant]
     Indication: GASTRIC ULCER

REACTIONS (2)
  - CHEST PAIN [None]
  - PLEURAL FIBROSIS [None]
